FAERS Safety Report 9581055 (Version 1)
Quarter: 2013Q3

REPORT INFORMATION
  Report Type: Spontaneous
  Country: US (occurrence: None)
  Receive Date: 20130916
  Receipt Date: 20130916
  Transmission Date: 20140515
  Serious: Yes (Other)
  Sender: FDA-Public Use
  Company Number: JPI-P-025929

PATIENT
  Age: 43 Year
  Sex: Female

DRUGS (7)
  1. XYREM [Suspect]
     Indication: CATAPLEXY
     Dosage: 4.5 GM (2.25 GM, 2 IN 1 D), ORAL
     Route: 048
     Dates: start: 20100726, end: 2010
  2. ARIPIPRAZOLE [Suspect]
     Indication: PRODUCT USED FOR UNKNOWN INDICATION
  3. DULOXETINE HYDROCHLORIDE [Concomitant]
  4. OLANZAPINE [Concomitant]
  5. ARMODAFINIL [Concomitant]
  6. OXCARBAZEPINE [Concomitant]
  7. LORAZEPAM [Concomitant]

REACTIONS (1)
  - Suicidal ideation [None]
